FAERS Safety Report 23194897 (Version 2)
Quarter: 2023Q4

REPORT INFORMATION
  Report Type: Report from Study
  Country: CA (occurrence: CA)
  Receive Date: 20231117
  Receipt Date: 20231222
  Transmission Date: 20240109
  Serious: Yes (Death)
  Sender: FDA-Public Use
  Company Number: CA-BAYER-2023A163812

PATIENT
  Sex: Female

DRUGS (2)
  1. EYLEA [Suspect]
     Active Substance: AFLIBERCEPT
     Indication: Diabetic retinal oedema
     Dosage: UNK, ONCE, SOLUTION FOR INJECTION, 40 MG/ML
     Dates: start: 20181218, end: 20181218
  2. EYLEA [Suspect]
     Active Substance: AFLIBERCEPT
     Dosage: UNK, ONCE, SOLUTION FOR INJECTION , 40 MG/ML
     Dates: start: 20231016, end: 20231016

REACTIONS (1)
  - Death [Fatal]

NARRATIVE: CASE EVENT DATE: 20231110
